FAERS Safety Report 9625645 (Version 1)
Quarter: 2013Q4

REPORT INFORMATION
  Report Type: Spontaneous
  Country: US (occurrence: None)
  Receive Date: 20131015
  Receipt Date: 20131015
  Transmission Date: 20140711
  Serious: Yes (Hospitalization)
  Sender: FDA-Public Use
  Company Number: None

PATIENT
  Age: 31 Year
  Sex: Female
  Weight: 58.97 kg

DRUGS (3)
  1. PROMETHAZINE [Suspect]
     Indication: NAUSEA
     Route: 042
     Dates: start: 20131009, end: 20131015
  2. SODIUM CHLORIDE [Concomitant]
  3. HEPARIN [Concomitant]

REACTIONS (3)
  - Swollen tongue [None]
  - Hypertension [None]
  - Product lot number issue [None]
